FAERS Safety Report 8607682 (Version 2)
Quarter: 2012Q4

REPORT INFORMATION
  Report Type: 
  Country: US (occurrence: US)
  Receive Date: 20120611
  Receipt Date: 20120904
  Transmission Date: 20130627
  Serious: Yes (Hospitalization)
  Sender: FDA-Public Use
  Company Number: US-BAYER-2012-055862

PATIENT
  Age: 22 Year
  Sex: Female
  Weight: 63.04 kg

DRUGS (6)
  1. YAZ [Suspect]
     Indication: CONTRACEPTION
     Dosage: UNK
     Dates: start: 2008
  2. YAZ [Suspect]
     Indication: ACNE
  3. YAZ [Suspect]
     Indication: PREMENSTRUAL SYNDROME
  4. YAZ [Suspect]
     Indication: PREMENSTRUAL SYNDROME
  5. LEXAPRO [Concomitant]
     Indication: ANXIETY
     Dosage: Daily
     Dates: start: 2008, end: 201105
  6. PRISTIQ [Concomitant]
     Indication: ANXIETY
     Dosage: Daily
     Dates: start: 201105, end: 201106

REACTIONS (4)
  - Gallbladder disorder [None]
  - Injury [None]
  - Pain [None]
  - Emotional distress [None]
